FAERS Safety Report 5113046-5 (Version None)
Quarter: 2006Q3

REPORT INFORMATION
  Report Type: 
  Country: None (occurrence: None)
  Receive Date: 20060922
  Receipt Date: 20060919
  Transmission Date: 20061208
  Serious: Yes (Hospitalization, Disabling)
  Sender: FDA-Public Use
  Company Number: BR-BOEHRINGER INGELHEIM PHARMACEUTICALS, INC.-2006-BP-11013BR

PATIENT
  Sex: Male

DRUGS (10)
  1. SPIRIVA [Suspect]
     Indication: PULMONARY HYPERTENSION
     Route: 055
  2. SPIRIVA [Suspect]
     Indication: EMPHYSEMA
  3. SPIRIVA [Suspect]
     Indication: LUNG DISORDER
  4. FORASEQ [Concomitant]
     Route: 055
  5. BEROTEC [Concomitant]
     Route: 055
  6. PAROXETINE HCL [Concomitant]
     Route: 048
  7. DEFLAZACORT [Concomitant]
     Route: 048
  8. COMBIVENT [Concomitant]
     Route: 055
  9. VIAGRA [Concomitant]
     Indication: PULMONARY HYPERTENSION
     Route: 048
  10. VIAGRA [Concomitant]
     Indication: EMPHYSEMA

REACTIONS (2)
  - BRONCHOPULMONARY DISEASE [None]
  - HOSPITALISATION [None]
